FAERS Safety Report 4803071-3 (Version None)
Quarter: 2005Q4

REPORT INFORMATION
  Report Type: 
  Country: None (occurrence: None)
  Receive Date: 20051013
  Receipt Date: 20050922
  Transmission Date: 20060501
  Serious: Yes (Other)
  Sender: FDA-Public Use
  Company Number: DE_050917024

PATIENT
  Age: 80 Year
  Sex: Female

DRUGS (2)
  1. YENTREVE (DULOXETINE HYDROCHLORIDE) [Suspect]
     Indication: STRESS INCONTINENCE
     Dosage: 20 MG DAY
  2. YENTREVE (DULOXETINE HYDROCHLORIDE) [Suspect]
     Indication: URINARY INCONTINENCE
     Dosage: 20 MG DAY

REACTIONS (2)
  - FALL [None]
  - FEMORAL NECK FRACTURE [None]
